FAERS Safety Report 18908281 (Version 1)
Quarter: 2021Q1

REPORT INFORMATION
  Report Type: Spontaneous
  Country: US (occurrence: US)
  Receive Date: 20210218
  Receipt Date: 20210218
  Transmission Date: 20210420
  Serious: No
  Sender: FDA-Public Use
  Company Number: US-BEH-2021128457

PATIENT
  Age: 69 Year
  Sex: Female

DRUGS (1)
  1. PRIVIGEN [Suspect]
     Active Substance: HUMAN IMMUNOGLOBULIN G
     Dosage: 20 GRAM DAILY, FOR 5 DAYS, EVERY 6 WEEKS
     Route: 042
     Dates: start: 20180119

REACTIONS (2)
  - Musculoskeletal stiffness [Not Recovered/Not Resolved]
  - Fall [Not Recovered/Not Resolved]
